FAERS Safety Report 9654353 (Version 1)
Quarter: 2013Q4

REPORT INFORMATION
  Report Type: Spontaneous
  Country: GB (occurrence: GB)
  Receive Date: 20131029
  Receipt Date: 20131029
  Transmission Date: 20140711
  Serious: Yes (Death)
  Sender: FDA-Public Use
  Company Number: GB-CUBIST PHARMACEUTICALS, INC.-2013CBST001033

PATIENT
  Sex: 0

DRUGS (2)
  1. CUBICIN [Suspect]
     Dosage: UNK UNK, UNK
     Route: 065
     Dates: end: 201303
  2. VANCOMYCIN /00314402/ [Suspect]
     Indication: STAPHYLOCOCCAL SEPSIS
     Dosage: UNK, UNK, UNK
     Route: 065

REACTIONS (2)
  - Staphylococcal sepsis [Fatal]
  - Skin mass [Recovering/Resolving]
